FAERS Safety Report 9016667 (Version 5)
Quarter: 2013Q3

REPORT INFORMATION
  Report Type: Spontaneous
  Country: CA (occurrence: CA)
  Receive Date: 20130117
  Receipt Date: 20130731
  Transmission Date: 20140515
  Serious: Yes (Hospitalization, Other)
  Sender: FDA-Public Use
  Company Number: CA-AMGEN-CANSP2013001708

PATIENT
  Age: 19 Year
  Sex: Male
  Weight: 81 kg

DRUGS (1)
  1. NPLATE [Suspect]
     Indication: IMMUNE THROMBOCYTOPENIC PURPURA
     Dosage: 9 MUG/KG, QWK
     Route: 058
     Dates: start: 20100311

REACTIONS (3)
  - Therapeutic response decreased [Unknown]
  - Hospitalisation [Unknown]
  - Thrombocytopenia [Recovered/Resolved]
